FAERS Safety Report 26208449 (Version 1)
Quarter: 2025Q4

REPORT INFORMATION
  Report Type: Spontaneous
  Country: US (occurrence: None)
  Receive Date: 20251226
  Receipt Date: 20251226
  Transmission Date: 20260117
  Serious: Yes (Hospitalization)
  Sender: FDA-CTU
  Company Number: None

PATIENT
  Age: 33 Year
  Sex: Male

DRUGS (1)
  1. RINVOQ [Suspect]
     Active Substance: UPADACITINIB
     Dosage: 45MG  ONCE DAILY

REACTIONS (6)
  - Chest pain [None]
  - Muscular weakness [None]
  - Chest discomfort [None]
  - Palpitations [None]
  - Headache [None]
  - Abscess intestinal [None]
